FAERS Safety Report 21688101 (Version 1)
Quarter: 2022Q4

REPORT INFORMATION
  Report Type: Spontaneous
  Country: US (occurrence: US)
  Receive Date: 20221206
  Receipt Date: 20221206
  Transmission Date: 20230113
  Serious: Yes (Death, Other)
  Sender: FDA-Public Use
  Company Number: US-SA-2022SA492513

PATIENT
  Age: 40 Year
  Sex: Male

DRUGS (4)
  1. DIPHENHYDRAMINE [Interacting]
     Active Substance: DIPHENHYDRAMINE
     Dosage: UNK
  2. METHADONE [Interacting]
     Active Substance: METHADONE HYDROCHLORIDE
     Dosage: UNK
  3. COCAINE [Interacting]
     Active Substance: COCAINE
     Dosage: UNK
  4. ALCOHOL [Interacting]
     Active Substance: ALCOHOL
     Dosage: UNK

REACTIONS (3)
  - Death [Fatal]
  - Overdose [Fatal]
  - Drug interaction [Fatal]
